FAERS Safety Report 5987159-X (Version None)
Quarter: 2008Q4

REPORT INFORMATION
  Report Type: 
  Country: None (occurrence: None)
  Receive Date: 20081209
  Receipt Date: 20081126
  Transmission Date: 20090506
  Serious: Yes (Other)
  Sender: FDA-Public Use
  Company Number: JP-PFIZER INC-2008150252

PATIENT

DRUGS (4)
  1. CAMPTOSAR [Suspect]
     Indication: COLON CANCER
     Route: 042
  2. OXALIPLATIN [Suspect]
     Indication: COLON CANCER
     Route: 042
  3. CALCIUM LEVOFOLINATE [Concomitant]
     Route: 042
  4. FLUOROURACIL [Concomitant]
     Route: 042

REACTIONS (1)
  - ILLUSION [None]
